FAERS Safety Report 10952279 (Version 1)
Quarter: 2015Q1

REPORT INFORMATION
  Report Type: Spontaneous
  Country: US (occurrence: None)
  Receive Date: 20150324
  Receipt Date: 20150324
  Transmission Date: 20150721
  Serious: No
  Sender: FDA-Public Use
  Company Number: None

PATIENT
  Age: 49 Year
  Sex: Female
  Weight: 54.43 kg

DRUGS (8)
  1. SELENIUM [Concomitant]
     Active Substance: SELENIUM
  2. CALCIUM [Concomitant]
     Active Substance: CALCIUM
  3. LITHIUM [Concomitant]
     Active Substance: LITHIUM CARBONATE
  4. VITAMIN [Concomitant]
     Active Substance: VITAMINS
  5. ZINC [Concomitant]
     Active Substance: ZINC\ZINC CHLORIDE
  6. BIOTIN [Concomitant]
     Active Substance: BIOTIN
  7. EMSAM [Suspect]
     Active Substance: SELEGILINE
     Indication: BIPOLAR DISORDER
     Dosage: EMSAM PATCH APPLIED AS MEDICATED PATCH TO SKIN
  8. VITAMIN D [Concomitant]
     Active Substance: CHOLECALCIFEROL

REACTIONS (2)
  - Salivary hypersecretion [None]
  - Insomnia [None]

NARRATIVE: CASE EVENT DATE: 20150101
